FAERS Safety Report 4654185-2 (Version None)
Quarter: 2005Q2

REPORT INFORMATION
  Report Type: 
  Country: None (occurrence: None)
  Receive Date: 20050404
  Receipt Date: 20041213
  Transmission Date: 20051028
  Serious: No
  Sender: FDA-Public Use
  Company Number: USA041286076

PATIENT
  Age: 42 Year
  Sex: Male
  Weight: 114 kg

DRUGS (3)
  1. CYMBALTA [Suspect]
     Indication: DIABETIC NEUROPATHY
     Dosage: 120 MG DAY
     Dates: start: 20041026
  2. NEURONTIN (GABAPENTIN PRIZER) [Concomitant]
  3. DIABETIC MEDICATION [Concomitant]

REACTIONS (2)
  - DRUG EFFECT DECREASED [None]
  - PRESCRIBED OVERDOSE [None]
